FAERS Safety Report 5471675-3 (Version None)
Quarter: 2007Q3

REPORT INFORMATION
  Report Type: 
  Country: None (occurrence: None)
  Receive Date: 20070928
  Receipt Date: 20070323
  Transmission Date: 20080115
  Serious: No
  Sender: FDA-Public Use
  Company Number: US-BRISTOL-MYERS SQUIBB COMPANY-13725619

PATIENT
  Age: 77 Year
  Sex: Male

DRUGS (1)
  1. DEFINITY [Suspect]
     Indication: ECHOCARDIOGRAM
     Dosage: 6 CC OF A DILUTED BOLUS GIVEN (CC NOT AN OPTION TO CHOOSE IN DOSE INFO)
     Route: 040

REACTIONS (6)
  - DIZZINESS [None]
  - HEART RATE INCREASED [None]
  - HYPERHIDROSIS [None]
  - PRESYNCOPE [None]
  - PRURITUS [None]
  - URTICARIA [None]
